FAERS Safety Report 11596921 (Version 1)
Quarter: 2015Q4

REPORT INFORMATION
  Report Type: Spontaneous
  Country: US (occurrence: None)
  Receive Date: 20151005
  Receipt Date: 20151005
  Transmission Date: 20160304
  Serious: Yes (Other)
  Sender: FDA-Public Use
  Company Number: None

PATIENT
  Age: 49 Year
  Sex: Male
  Weight: 83.92 kg

DRUGS (5)
  1. VITAMIN C [Concomitant]
     Active Substance: ASCORBIC ACID
  2. VITAMIN D [Concomitant]
     Active Substance: CHOLECALCIFEROL
  3. GARLIQUE [Concomitant]
     Active Substance: GARLIC
  4. CREST PRO-HEALTH CLINICAL [Suspect]
     Active Substance: CETYLPYRIDINIUM CHLORIDE
     Indication: DENTAL DISORDER PROPHYLAXIS
     Dosage: 20 ML TWICE DAILY RINSED MOUTH
     Dates: start: 20150510, end: 20150512
  5. PRAVASTATIN [Concomitant]
     Active Substance: PRAVASTATIN\PRAVASTATIN SODIUM

REACTIONS (2)
  - Swelling face [None]
  - Salivary gland enlargement [None]

NARRATIVE: CASE EVENT DATE: 20150513
